FAERS Safety Report 5134776-5 (Version None)
Quarter: 2006Q4

REPORT INFORMATION
  Report Type: 
  Country: None (occurrence: None)
  Receive Date: 20060831
  Receipt Date: 20060523
  Transmission Date: 20070319
  Serious: No
  Sender: FDA-Public Use
  Company Number: 2006-BP-05188BP

PATIENT
  Sex: Male

DRUGS (15)
  1. SPIRIVA [Suspect]
     Indication: ASTHMA
     Dosage: 18 MCG (18 MCG,1 IN 1 D),IH
     Route: 055
  2. SPIRIVA [Suspect]
  3. COMBIVENT (COMBIVENT /01261001/) [Concomitant]
  4. SYNTHROID [Concomitant]
  5. ASPIRIN [Concomitant]
  6. IBUPROFEN [Concomitant]
  7. NASALCROM [Concomitant]
  8. DOXAZOSIN (DOXAZOSIN) [Concomitant]
  9. NIACIN [Concomitant]
  10. CARDURA [Concomitant]
  11. MULTI-VITAMIN [Concomitant]
  12. SAW PALMETTO (SERENOA REPENS) [Concomitant]
  13. CALTRATE [Concomitant]
  14. BENADRYL [Concomitant]
  15. ALBUTEROL [Concomitant]

REACTIONS (1)
  - DRUG INEFFECTIVE [None]
